FAERS Safety Report 10660242 (Version 2)
Quarter: 2014Q4

REPORT INFORMATION
  Report Type: Spontaneous
  Country: US (occurrence: US)
  Receive Date: 20141217
  Receipt Date: 20141217
  Transmission Date: 20150529
  Serious: No
  Sender: FDA-Public Use
  Company Number: US-GLAXOSMITHKLINE-A1081749A

PATIENT

DRUGS (1)
  1. VOTRIENT [Suspect]
     Active Substance: PAZOPANIB HYDROCHLORIDE
     Indication: RENAL CANCER
     Route: 065
     Dates: start: 20140629

REACTIONS (9)
  - Blood pressure abnormal [Unknown]
  - Flatulence [Unknown]
  - Diarrhoea [Unknown]
  - Adverse drug reaction [Unknown]
  - Fatigue [Unknown]
  - Pain [Unknown]
  - Vomiting [Unknown]
  - Nausea [Unknown]
  - Thyroid disorder [Unknown]
